FAERS Safety Report 14651143 (Version 1)
Quarter: 2018Q1

REPORT INFORMATION
  Report Type: Spontaneous
  Country: CA (occurrence: CA)
  Receive Date: 20180316
  Receipt Date: 20180316
  Transmission Date: 20180509
  Serious: Yes (Other)
  Sender: FDA-Public Use
  Company Number: CA-TEVA-2018-CA-868689

PATIENT
  Age: 46 Year
  Sex: Female

DRUGS (5)
  1. PLAQUENIL [Concomitant]
     Active Substance: HYDROXYCHLOROQUINE SULFATE
  2. CLINDAMYCIN. [Suspect]
     Active Substance: CLINDAMYCIN
  3. METHOTREXATE. [Concomitant]
     Active Substance: METHOTREXATE
  4. FOLIC ACID. [Concomitant]
     Active Substance: FOLIC ACID
  5. METRONIDAZOLE. [Suspect]
     Active Substance: METRONIDAZOLE
     Dosage: 2 UNITS

REACTIONS (5)
  - Oesophagitis [Unknown]
  - Discomfort [Unknown]
  - Intentional product use issue [Unknown]
  - Dyspepsia [Unknown]
  - Product use complaint [Unknown]
